FAERS Safety Report 9795279 (Version 2)
Quarter: 2016Q1

REPORT INFORMATION
  Report Type: Report from Study
  Country: US (occurrence: US)
  Receive Date: 20140103
  Receipt Date: 20160302
  Transmission Date: 20160526
  Serious: Yes (Death, Other)
  Sender: FDA-Public Use
  Company Number: US-ROCHE-1327803

PATIENT
  Age: 46 Year
  Sex: Male

DRUGS (2)
  1. ACTIVASE [Suspect]
     Active Substance: ALTEPLASE
     Indication: RESPIRATORY ARREST
     Route: 042
     Dates: start: 20130417, end: 20130417
  2. ACTIVASE [Suspect]
     Active Substance: ALTEPLASE
     Indication: PULMONARY EMBOLISM

REACTIONS (2)
  - Pain in extremity [Unknown]
  - Death [Fatal]

NARRATIVE: CASE EVENT DATE: 20130417
